FAERS Safety Report 5489847-0 (Version None)
Quarter: 2007Q4

REPORT INFORMATION
  Report Type: 
  Country: None (occurrence: None)
  Receive Date: 20071018
  Receipt Date: 20071011
  Transmission Date: 20080405
  Serious: Yes (Other)
  Sender: FDA-Public Use
  Company Number: FR-BRISTOL-MYERS SQUIBB COMPANY-13944368

PATIENT
  Sex: Male

DRUGS (2)
  1. COAPROVEL TABS [Suspect]
     Route: 048
  2. PROFENID [Interacting]
     Route: 048

REACTIONS (2)
  - DRUG INTERACTION [None]
  - HYPERTENSIVE CRISIS [None]
